FAERS Safety Report 9352708 (Version 1)
Quarter: 2013Q2

REPORT INFORMATION
  Report Type: Spontaneous
  Country: KE (occurrence: KE)
  Receive Date: 20130618
  Receipt Date: 20130618
  Transmission Date: 20140414
  Serious: Yes (Life-Threatening, Other)
  Sender: FDA-Public Use
  Company Number: KE-PFIZER INC-2013177538

PATIENT
  Age: 49 Year
  Sex: Male
  Weight: 104 kg

DRUGS (1)
  1. ZITHROMAX [Suspect]
     Dosage: 500 MG, STAT (SINGLE)
     Route: 042
     Dates: start: 20130610, end: 20130610

REACTIONS (9)
  - Incorrect route of drug administration [Unknown]
  - Product label issue [Unknown]
  - Palpitations [Unknown]
  - Dizziness [Unknown]
  - Hyperhidrosis [Unknown]
  - Cardiomegaly [Unknown]
  - White blood cell count increased [Unknown]
  - Red blood cell count increased [Unknown]
  - Haemoglobin increased [Unknown]
